FAERS Safety Report 7102823-7 (Version None)
Quarter: 2010Q4

REPORT INFORMATION
  Report Type: 
  Country: None (occurrence: None)
  Receive Date: 20101115
  Receipt Date: 20101110
  Transmission Date: 20110411
  Serious: Yes (Death)
  Sender: FDA-Public Use
  Company Number: PHHY2010US76405

PATIENT
  Sex: Female
  Weight: 47 kg

DRUGS (1)
  1. EXJADE [Suspect]
     Indication: NEOPLASM
     Dosage: 500 MG DAILY
     Route: 048
     Dates: start: 20101011

REACTIONS (1)
  - DEATH [None]
